FAERS Safety Report 22200853 (Version 3)
Quarter: 2023Q2

REPORT INFORMATION
  Report Type: Report from Study
  Country: US (occurrence: None)
  Receive Date: 20230412
  Receipt Date: 20230511
  Transmission Date: 20230721
  Serious: Yes (Other)
  Sender: FDA-Public Use
  Company Number: US-ROCHE-3326822

PATIENT
  Age: 70 Year
  Sex: Male

DRUGS (3)
  1. ATEZOLIZUMAB [Suspect]
     Active Substance: ATEZOLIZUMAB
     Indication: Chronic lymphocytic leukaemia
     Dosage: LAST DOSE: 22/FEB/2023?SPLIT INTO TWO DAYS (840 MG)
     Route: 041
     Dates: start: 20221101
  2. OBINUTUZUMAB [Suspect]
     Active Substance: OBINUTUZUMAB
     Indication: Chronic lymphocytic leukaemia
     Dosage: LAST DOSE: 21/FEB/2023
     Route: 042
     Dates: start: 20221103
  3. VENETOCLAX [Suspect]
     Active Substance: VENETOCLAX
     Indication: Chronic lymphocytic leukaemia
     Dosage: LAST DOSE: 04/APR/2023
     Route: 065
     Dates: start: 20221129

REACTIONS (2)
  - Neoplasm [Recovered/Resolved]
  - Squamous cell carcinoma [Recovered/Resolved]

NARRATIVE: CASE EVENT DATE: 20230308
